FAERS Safety Report 14596909 (Version 1)
Quarter: 2018Q1

REPORT INFORMATION
  Report Type: Spontaneous
  Country: JP (occurrence: JP)
  Receive Date: 20180305
  Receipt Date: 20180305
  Transmission Date: 20180509
  Serious: Yes (Other)
  Sender: FDA-Public Use
  Company Number: JP-009507513-1802JPN002812J

PATIENT
  Age: 2 Year

DRUGS (2)
  1. CUBICIN [Suspect]
     Active Substance: DAPTOMYCIN
     Dosage: 10 MG/KG, QOD
     Route: 041
     Dates: start: 201706, end: 201706
  2. CUBICIN [Suspect]
     Active Substance: DAPTOMYCIN
     Indication: STAPHYLOCOCCAL SKIN INFECTION
     Dosage: 10 MG/KG, QOD
     Route: 041
     Dates: start: 201706, end: 201706

REACTIONS (4)
  - Drug administered to patient of inappropriate age [Unknown]
  - Overdose [Unknown]
  - Staphylococcal infection [Unknown]
  - Blood creatine phosphokinase increased [Recovered/Resolved]

NARRATIVE: CASE EVENT DATE: 201706
